FAERS Safety Report 8317937-3 (Version None)
Quarter: 2012Q2

REPORT INFORMATION
  Report Type: 
  Country: None (occurrence: None)
  Receive Date: 20120427
  Receipt Date: 20120419
  Transmission Date: 20120825
  Serious: Yes (Hospitalization)
  Sender: FDA-Public Use
  Company Number: US-BAYER-2012-004455

PATIENT
  Age: 29 Year
  Sex: Female
  Weight: 111.57 kg

DRUGS (6)
  1. YASMIN [Suspect]
     Dosage: UNK
     Route: 048
     Dates: start: 20100101, end: 20100301
  2. ACETAMINOPHEN [Concomitant]
  3. DROSPIRENONE AND ETHINYL ESTRADIOL [Suspect]
     Dosage: UNK
     Route: 048
     Dates: start: 20081101, end: 20091201
  4. AZITHROMYCIN [Concomitant]
     Dosage: 250 MG, UNK
     Dates: start: 20100309
  5. NSAID'S [Concomitant]
     Dosage: UNK UNK, PRN
  6. APAP W/ CODEINE [Concomitant]
     Dosage: 300-30 TAB
     Dates: start: 20100309

REACTIONS (14)
  - TRANSVERSE SINUS THROMBOSIS [None]
  - BRAIN OEDEMA [None]
  - HEADACHE [None]
  - COGNITIVE DISORDER [None]
  - HAEMORRHAGE [None]
  - RESPIRATORY FAILURE [None]
  - INJURY [None]
  - MOBILITY DECREASED [None]
  - PAIN [None]
  - SUPERIOR SAGITTAL SINUS THROMBOSIS [None]
  - CEREBRAL INFARCTION [None]
  - SUBARACHNOID HAEMORRHAGE [None]
  - CONVULSION [None]
  - VISUAL IMPAIRMENT [None]
